FAERS Safety Report 6999661-2 (Version None)
Quarter: 2010Q3

REPORT INFORMATION
  Report Type: 
  Country: None (occurrence: None)
  Receive Date: 20100920
  Receipt Date: 20100713
  Transmission Date: 20110219
  Serious: No
  Sender: FDA-Public Use
  Company Number: US-ASTRAZENECA-2010SE32582

PATIENT
  Age: 27 Year
  Sex: Male
  Weight: 158.8 kg

DRUGS (2)
  1. SEROQUEL [Suspect]
     Indication: ANXIETY DISORDER
     Route: 048
     Dates: start: 19990101
  2. SEROQUEL [Suspect]
     Route: 048

REACTIONS (4)
  - DECREASED INTEREST [None]
  - DEPRESSION [None]
  - DRUG DOSE OMISSION [None]
  - INSOMNIA [None]
